FAERS Safety Report 8536622-6 (Version None)
Quarter: 2012Q3

REPORT INFORMATION
  Report Type: 
  Country: None (occurrence: None)
  Receive Date: 20120725
  Receipt Date: 20120720
  Transmission Date: 20120928
  Serious: Yes (Hospitalization)
  Sender: FDA-Public Use
  Company Number: US-PFIZER INC-2012136287

PATIENT
  Sex: Male
  Weight: 99.3 kg

DRUGS (5)
  1. SUTENT [Suspect]
     Indication: PROSTATE CANCER
  2. SUTENT [Suspect]
     Indication: BONE NEOPLASM MALIGNANT
     Dosage: 50 MG, 1X/DAY
     Dates: start: 20120529, end: 20120602
  3. METOPROLOL TARTRATE [Suspect]
     Indication: HYPERTENSION
     Dosage: 12.5 MG, 2X/DAY
  4. SUTENT [Suspect]
     Indication: RENAL CANCER
  5. FENTANYL [Concomitant]
     Indication: PAIN
     Dosage: UNK

REACTIONS (3)
  - GRAND MAL CONVULSION [None]
  - FATIGUE [None]
  - HYPOTENSION [None]
